FAERS Safety Report 9988300 (Version 2)
Quarter: 2014Q1

REPORT INFORMATION
  Report Type: Spontaneous
  Country: IT (occurrence: IT)
  Receive Date: 20140310
  Receipt Date: 20140321
  Transmission Date: 20141002
  Serious: Yes (Other)
  Sender: FDA-Public Use
  Company Number: IT-AMGEN-ITASP2014016320

PATIENT
  Age: 28 Year
  Sex: Female

DRUGS (4)
  1. ENBREL [Suspect]
     Indication: PRODUCT USED FOR UNKNOWN INDICATION
     Dosage: 50 MG, WEEKLY
     Route: 058
     Dates: start: 20130401
  2. SALAZOPYRIN [Suspect]
     Indication: SPONDYLITIS
     Dosage: 2 G, DAILY
     Route: 048
     Dates: start: 20130401
  3. DULOXETINE HYDROCHLORIDE [Concomitant]
     Dosage: UNK
     Route: 065
  4. ACETAMOL                           /00020001/ [Concomitant]
     Dosage: UNK UNK, UNK
     Route: 065

REACTIONS (2)
  - Lymphopenia [Not Recovered/Not Resolved]
  - White blood cell count decreased [Unknown]
